FAERS Safety Report 4739944-X (Version None)
Quarter: 2005Q3

REPORT INFORMATION
  Report Type: 
  Country: None (occurrence: None)
  Receive Date: 20050810
  Receipt Date: 20030923
  Transmission Date: 20060218
  Serious: No
  Sender: FDA-Public Use
  Company Number: US-GLAXOSMITHKLINE-A0428849A

PATIENT
  Sex: Female

DRUGS (4)
  1. PAXIL [Suspect]
     Route: 048
     Dates: start: 20020506, end: 20020801
  2. PAXIL CR [Suspect]
     Route: 048
  3. TRANSDERM SCOP [Concomitant]
  4. FLUOXETINE [Concomitant]
     Route: 048

REACTIONS (1)
  - DRUG WITHDRAWAL SYNDROME [None]
